FAERS Safety Report 10089502 (Version 1)
Quarter: 2014Q2

REPORT INFORMATION
  Report Type: Spontaneous
  Country: US (occurrence: US)
  Receive Date: 20140421
  Receipt Date: 20140421
  Transmission Date: 20141212
  Serious: Yes (Hospitalization)
  Sender: FDA-Public Use
  Company Number: US-ELI_LILLY_AND_COMPANY-US201404002829

PATIENT
  Age: 31 Year
  Sex: Female

DRUGS (8)
  1. ZYPREXA RELPREVV [Suspect]
     Indication: SCHIZOPHRENIA
     Dosage: 405 MG, EVERY FOUR WEEKS
     Route: 065
     Dates: start: 20100728
  2. BACITRACIN [Concomitant]
  3. VITAMIN D                          /00107901/ [Concomitant]
     Dosage: 5000 U, BID
     Route: 065
  4. COLACE [Concomitant]
     Dosage: 100 MG, EVERY 12 HOURS
  5. MILK OF MAGNESIA [Concomitant]
     Dosage: EVERY 12 HOURS, PRN
     Route: 065
  6. MYLANTA                            /00036701/ [Concomitant]
     Dosage: PRN, EVERY 6 HRS
     Route: 065
  7. TYLENOL                            /00020001/ [Concomitant]
     Dosage: 325 MG, EVERY 4 HOURS,PRN, 1 TO 2 TABLETS
     Route: 065
  8. MAGNESIUM CITRATE [Concomitant]
     Dosage: ONE BOTTLE, QD
     Route: 065

REACTIONS (1)
  - Staphylococcal infection [Unknown]
